FAERS Safety Report 6743470-6 (Version None)
Quarter: 2010Q2

REPORT INFORMATION
  Report Type: 
  Country: None (occurrence: None)
  Receive Date: 20100527
  Receipt Date: 20100517
  Transmission Date: 20101027
  Serious: Yes (Hospitalization)
  Sender: FDA-Public Use
  Company Number: US-MYLANLABS-2010S1008653

PATIENT
  Age: 36 Year
  Sex: Male

DRUGS (15)
  1. MERCAPTOPURINE [Suspect]
     Indication: ACUTE LYMPHOCYTIC LEUKAEMIA
     Dosage: 60 MG/M2/DAY
     Route: 048
  2. METHOTREXATE [Concomitant]
     Indication: ACUTE LYMPHOCYTIC LEUKAEMIA
     Route: 037
  3. METHOTREXATE [Concomitant]
     Route: 042
  4. METHOTREXATE [Concomitant]
     Route: 048
  5. COTRIM [Concomitant]
     Indication: ANTIFUNGAL PROPHYLAXIS
  6. FOLINIC ACID [Concomitant]
     Indication: ACUTE LYMPHOCYTIC LEUKAEMIA
  7. INSULIN SUSPENSION ISOPHANE [Concomitant]
     Indication: DIABETES MELLITUS
  8. LEVOTHYROXINE SODIUM [Concomitant]
     Indication: HYPOTHYROIDISM
  9. ACYCLOVIR SODIUM [Concomitant]
  10. SENNA [Concomitant]
  11. CALCIUM ACETATE [Concomitant]
  12. OXYCODONE [Concomitant]
  13. GABAPENTIN [Concomitant]
  14. ONDANSETRON [Concomitant]
     Indication: NAUSEA
     Dosage: AS NEEDED
  15. LACTULOSE [Concomitant]
     Indication: CONSTIPATION
     Dosage: AS NEEDED

REACTIONS (2)
  - HYPERSENSITIVITY [None]
  - PYREXIA [None]
